FAERS Safety Report 21839940 (Version 4)
Quarter: 2023Q1

REPORT INFORMATION
  Report Type: Report from Study
  Country: US (occurrence: US)
  Receive Date: 20230110
  Receipt Date: 20230201
  Transmission Date: 20230418
  Serious: No
  Sender: FDA-Public Use
  Company Number: US-ABBVIE-4262771

PATIENT
  Age: 84 Year
  Sex: Female

DRUGS (1)
  1. IMBRUVICA [Suspect]
     Active Substance: IBRUTINIB
     Indication: Chronic lymphocytic leukaemia
     Dosage: DRUG START DATE - 03 JAN 2023
     Route: 048

REACTIONS (20)
  - Muscle spasms [Recovering/Resolving]
  - Diarrhoea [Unknown]
  - Muscular weakness [Not Recovered/Not Resolved]
  - Muscle spasms [Recovering/Resolving]
  - Night sweats [Recovering/Resolving]
  - Hiccups [Not Recovered/Not Resolved]
  - Gingival bleeding [Not Recovered/Not Resolved]
  - Insomnia [Not Recovered/Not Resolved]
  - Bone pain [Unknown]
  - Stomatitis [Not Recovered/Not Resolved]
  - Hypertension [Not Recovered/Not Resolved]
  - Urinary tract infection [Unknown]
  - Chest discomfort [Unknown]
  - Dizziness [Not Recovered/Not Resolved]
  - Emotional disorder [Unknown]
  - Blood pressure abnormal [Unknown]
  - Dry mouth [Not Recovered/Not Resolved]
  - Oral pain [Unknown]
  - Urinary incontinence [Not Recovered/Not Resolved]
  - Cheilitis [Not Recovered/Not Resolved]

NARRATIVE: CASE EVENT DATE: 20230101
